FAERS Safety Report 4467390-5 (Version None)
Quarter: 2004Q4

REPORT INFORMATION
  Report Type: 
  Country: None (occurrence: None)
  Receive Date: 20041006
  Receipt Date: 20040927
  Transmission Date: 20050328
  Serious: Yes (Other)
  Sender: FDA-Public Use
  Company Number: PHBS2004CA12850

PATIENT
  Age: 62 Year
  Sex: Female

DRUGS (1)
  1. COMBIPATCH [Suspect]
     Indication: HORMONE REPLACEMENT THERAPY
     Dosage: 50 ESTR - 140 NORE UG/DAY
     Route: 062
     Dates: start: 20030101, end: 20040926

REACTIONS (3)
  - DYSPNOEA [None]
  - HYPERTENSION [None]
  - VAGINAL HAEMORRHAGE [None]
